FAERS Safety Report 17090905 (Version 1)
Quarter: 2019Q4

REPORT INFORMATION
  Report Type: Spontaneous
  Country: US (occurrence: US)
  Receive Date: 20191031
  Receipt Date: 20191031
  Transmission Date: 20200122
  Serious: Yes (Hospitalization)
  Sender: FDA-Public Use
  Company Number: None

PATIENT
  Age: 43 Year
  Sex: Female

DRUGS (2)
  1. ADEMPAS [Suspect]
     Active Substance: RIOCIGUAT
     Indication: PULMONARY ARTERIAL HYPERTENSION
     Route: 048
     Dates: start: 20190911
  2. ADEMPAS [Suspect]
     Active Substance: RIOCIGUAT
     Indication: CONNECTIVE TISSUE DISORDER
     Route: 048
     Dates: start: 20190911

REACTIONS (3)
  - Fluid retention [None]
  - Fatigue [None]
  - Hypotension [None]

NARRATIVE: CASE EVENT DATE: 20191031
